FAERS Safety Report 5587494-3 (Version None)
Quarter: 2008Q1

REPORT INFORMATION
  Report Type: 
  Country: None (occurrence: None)
  Receive Date: 20080110
  Receipt Date: 20080102
  Transmission Date: 20080703
  Serious: Yes (Hospitalization)
  Sender: FDA-Public Use
  Company Number: US-GILEAD-2007-0014576

PATIENT
  Sex: Female

DRUGS (2)
  1. LETAIRIS [Suspect]
  2. GABAPENTIN [Concomitant]
     Indication: PAIN

REACTIONS (1)
  - DRUG WITHDRAWAL SYNDROME [None]
